FAERS Safety Report 4293628-3 (Version None)
Quarter: 2004Q1

REPORT INFORMATION
  Report Type: 
  Country: None (occurrence: None)
  Receive Date: 20040210
  Receipt Date: 20040129
  Transmission Date: 20041129
  Serious: Yes (Death)
  Sender: FDA-Public Use
  Company Number: NL-JNJFOC-20040104001

PATIENT
  Age: 54 Year
  Sex: 0

DRUGS (4)
  1. RISPERDAL [Suspect]
     Indication: SCHIZOPHRENIA, PARANOID TYPE
     Dosage: 2 MG, 1 IN 1 DAY
     Dates: start: 20000702
  2. FLUVOXAMINE MALEATE [Concomitant]
  3. GLIBENCLAMIDE ( GLIBENCLAMIDE)TABLETS [Concomitant]
  4. LISINOPRIL (LISINOPRIL) TABLETS [Concomitant]

REACTIONS (2)
  - CARDIAC FAILURE ACUTE [None]
  - SUDDEN DEATH [None]
